FAERS Safety Report 4556050-8 (Version None)
Quarter: 2005Q1

REPORT INFORMATION
  Report Type: 
  Country: None (occurrence: None)
  Receive Date: 20050119
  Receipt Date: 20050105
  Transmission Date: 20050727
  Serious: Yes (Hospitalization)
  Sender: FDA-Public Use
  Company Number: FR-GLAXOSMITHKLINE-B0363596A

PATIENT
  Sex: Female
  Weight: 3.2 kg

DRUGS (2)
  1. DEROXAT [Suspect]
     Dosage: 10MG PER DAY
     Dates: end: 20041227
  2. NUBAIN [Suspect]
     Dosage: 10MG SINGLE DOSE
     Dates: start: 20041226, end: 20041226

REACTIONS (5)
  - DRUG EXPOSURE DURING PREGNANCY [None]
  - HYPOTONIA [None]
  - HYPOTONIA NEONATAL [None]
  - NEONATAL APNOEIC ATTACK [None]
  - PREGNANCY [None]
